FAERS Safety Report 9775876 (Version 5)
Quarter: 2014Q4

REPORT INFORMATION
  Report Type: Report from Study
  Country: DE (occurrence: DE)
  Receive Date: 20131220
  Receipt Date: 20141212
  Transmission Date: 20150529
  Serious: Yes (Hospitalization, Other)
  Sender: FDA-Public Use
  Company Number: DE-GLAXOSMITHKLINE-B0952326A

PATIENT
  Age: 74 Year
  Sex: Male
  Weight: 87 kg

DRUGS (17)
  1. SIMVASTATIN. [Concomitant]
     Active Substance: SIMVASTATIN
     Route: 048
  2. VALSARTAN. [Concomitant]
     Active Substance: VALSARTAN
     Route: 048
  3. CITALOPRAM [Concomitant]
     Active Substance: CITALOPRAM HYDROBROMIDE
     Route: 048
  4. HYDROCHLOROTHIAZIDE. [Concomitant]
     Active Substance: HYDROCHLOROTHIAZIDE
  5. TARGIN [Concomitant]
     Active Substance: NALOXONE HYDROCHLORIDE\OXYCODONE HYDROCHLORIDE
     Route: 048
  6. OMEPRAZOL [Concomitant]
     Active Substance: OMEPRAZOLE
     Route: 048
  7. METOCLOPRAMIDE. [Concomitant]
     Active Substance: METOCLOPRAMIDE
     Route: 048
  8. CONCOR [Concomitant]
     Active Substance: BISOPROLOL FUMARATE
  9. PAZOPANIB [Suspect]
     Active Substance: PAZOPANIB
     Indication: SARCOMA
     Dosage: RESTARTED ON 28 NOVEMBER 2013.
     Route: 048
     Dates: start: 20130822
  10. NISOLDIPIN [Concomitant]
  11. ASPIRIN. [Concomitant]
     Active Substance: ASPIRIN
     Route: 048
  12. ISOSORBIDE DINITRATE. [Concomitant]
     Active Substance: ISOSORBIDE DINITRATE
  13. OPIPRAMOL [Concomitant]
     Active Substance: OPIPRAMOL
     Route: 048
  14. MOXONIDIN [Concomitant]
     Active Substance: MOXONIDINE
     Route: 048
  15. MOLSIDOMIN [Concomitant]
     Route: 048
  16. ASPIRIN. [Concomitant]
     Active Substance: ASPIRIN
  17. PREDNISOLONE. [Concomitant]
     Active Substance: PREDNISOLONE
     Route: 048

REACTIONS (5)
  - Gamma-glutamyltransferase increased [Recovered/Resolved with Sequelae]
  - Aspartate aminotransferase increased [Recovered/Resolved with Sequelae]
  - Obliterative bronchiolitis [Recovered/Resolved with Sequelae]
  - Blood alkaline phosphatase increased [Recovered/Resolved with Sequelae]
  - Alanine aminotransferase increased [Recovered/Resolved with Sequelae]

NARRATIVE: CASE EVENT DATE: 20131117
